FAERS Safety Report 10174255 (Version 3)
Quarter: 2014Q3

REPORT INFORMATION
  Report Type: Spontaneous
  Country: US (occurrence: US)
  Receive Date: 20140515
  Receipt Date: 20140813
  Transmission Date: 20150326
  Serious: Yes (Other)
  Sender: FDA-Public Use
  Company Number: US-BAYER-2014-069581

PATIENT
  Age: 30 Year
  Sex: Female
  Weight: 58.96 kg

DRUGS (1)
  1. MIRENA [Suspect]
     Active Substance: LEVONORGESTREL
     Indication: CONTRACEPTION
     Dosage: 20 MCG/24HR, CONT
     Route: 015
     Dates: start: 20130417, end: 20131220

REACTIONS (11)
  - Pain [None]
  - Scar [None]
  - Injury [None]
  - Uterine perforation [None]
  - Abdominal pain lower [None]
  - Abortion spontaneous [None]
  - Emotional distress [None]
  - Menorrhagia [None]
  - Pregnancy with contraceptive device [None]
  - Post procedural haemorrhage [None]
  - Drug ineffective [None]

NARRATIVE: CASE EVENT DATE: 2013
